FAERS Safety Report 8761823 (Version 2)
Quarter: 2012Q4

REPORT INFORMATION
  Report Type: Spontaneous
  Country: US (occurrence: None)
  Receive Date: 20120823
  Receipt Date: 20121010
  Transmission Date: 20130627
  Serious: Yes (Death)
  Sender: FDA-Public Use
  Company Number: ADR-2012-01540

PATIENT
  Sex: Male

DRUGS (2)
  1. LIORESAL INTRATHECAL [Suspect]
  2. LIORESAL INTRATHECAL [Suspect]

REACTIONS (1)
  - Death [None]
